FAERS Safety Report 24673315 (Version 1)
Quarter: 2024Q4

REPORT INFORMATION
  Report Type: Spontaneous
  Country: US (occurrence: US)
  Receive Date: 20241128
  Receipt Date: 20241128
  Transmission Date: 20250115
  Serious: No
  Sender: IBSA INSTITUT BIOCHIMIQUE
  Company Number: US-IBSA PHARMA INC.-2023IBS000808

PATIENT

DRUGS (2)
  1. TIROSINT [Suspect]
     Active Substance: LEVOTHYROXINE SODIUM
     Indication: Hypothyroidism
     Dosage: 137 MICROGRAM, QD
     Route: 048
     Dates: end: 202311
  2. TIROSINT [Suspect]
     Active Substance: LEVOTHYROXINE SODIUM
     Dosage: 137 MICROGRAM, QD
     Route: 048
     Dates: start: 202311

REACTIONS (6)
  - Swollen tongue [Recovered/Resolved]
  - Dry mouth [Recovered/Resolved]
  - Hypoaesthesia [Recovered/Resolved]
  - Constipation [Recovered/Resolved]
  - Pain in extremity [Recovered/Resolved]
  - Drug intolerance [Unknown]
